FAERS Safety Report 7710028-1 (Version None)
Quarter: 2011Q3

REPORT INFORMATION
  Report Type: 
  Country: None (occurrence: None)
  Receive Date: 20110825
  Receipt Date: 20110815
  Transmission Date: 20111222
  Serious: Yes (Other)
  Sender: FDA-Public Use
  Company Number: PHHY2011US50807

PATIENT
  Sex: Female
  Weight: 99.32 kg

DRUGS (6)
  1. LISINOPRIL [Concomitant]
     Dosage: 20 MG, DAILY
     Route: 048
  2. LORTAB [Concomitant]
     Indication: MUSCULOSKELETAL CHEST PAIN
     Dosage: 40 MG, PRN
     Route: 048
  3. NEURONTIN [Concomitant]
     Indication: NEUROPATHY PERIPHERAL
     Dosage: 600 MG, HALF TAB BID
  4. BACLOFEN [Concomitant]
     Dosage: 20 MG, TID PRN
  5. FEMARA [Suspect]
     Indication: BREAST CANCER
     Dosage: 2.5 MG, DAILY
     Route: 048
     Dates: start: 20090505
  6. ALBUTEROL SULFATE AUTOHALER [Concomitant]
     Indication: RESPIRATORY DISORDER
     Dosage: 1 PUFF AS NEEDED

REACTIONS (1)
  - TRIGGER FINGER [None]
